FAERS Safety Report 17162851 (Version 1)
Quarter: 2019Q4

REPORT INFORMATION
  Report Type: Spontaneous
  Country: FR (occurrence: FR)
  Receive Date: 20191217
  Receipt Date: 20191217
  Transmission Date: 20200122
  Serious: Yes (Other)
  Sender: FDA-Public Use
  Company Number: FR-ACCORD-165820

PATIENT
  Age: 71 Year
  Sex: Male
  Weight: 83 kg

DRUGS (5)
  1. LOVENOX [Suspect]
     Active Substance: ENOXAPARIN SODIUM
     Indication: THROMBOSIS PROPHYLAXIS
     Dates: start: 20191101, end: 20191108
  2. REPAGLINIDE. [Concomitant]
     Active Substance: REPAGLINIDE
  3. OFLOXACIN MYLAN [Suspect]
     Active Substance: OFLOXACIN
     Indication: OSTEITIS
     Dosage: STRENGTH: 200 MG
     Route: 048
     Dates: start: 20191009, end: 20191108
  4. DALACIN [Suspect]
     Active Substance: CLINDAMYCIN
     Indication: OSTEITIS
     Dosage: STRENGTH: 300 MG
     Route: 048
     Dates: start: 20191009, end: 20191108
  5. ALLOPURINOL. [Suspect]
     Active Substance: ALLOPURINOL
     Indication: PRODUCT USED FOR UNKNOWN INDICATION
     Dates: end: 20191108

REACTIONS (3)
  - Rash maculo-papular [Recovered/Resolved]
  - Cholestasis [Recovering/Resolving]
  - Hepatocellular injury [Recovering/Resolving]

NARRATIVE: CASE EVENT DATE: 20191105
